FAERS Safety Report 20486856 (Version 2)
Quarter: 2022Q1

REPORT INFORMATION
  Report Type: Spontaneous
  Country: CA (occurrence: CA)
  Receive Date: 20220217
  Receipt Date: 20220313
  Transmission Date: 20220423
  Serious: Yes (Disabling, Other)
  Sender: FDA-Public Use
  Company Number: CA-BRISTOL-MYERS SQUIBB COMPANY-BMS-2022-020246

PATIENT
  Age: 61 Year
  Sex: Female
  Weight: 56.689 kg

DRUGS (9)
  1. ELIQUIS [Suspect]
     Active Substance: APIXABAN
     Indication: Pulmonary embolism
     Dosage: 10 MILLIGRAM, BID
     Route: 048
     Dates: start: 20201004
  2. ELIQUIS [Suspect]
     Active Substance: APIXABAN
     Dosage: 5 MILLIGRAM, BID
     Route: 048
  3. ELIQUIS [Suspect]
     Active Substance: APIXABAN
     Dosage: 2.5 MILLIGRAM, BID
     Route: 048
  4. CANDESARTAN CILEXETIL [Concomitant]
     Active Substance: CANDESARTAN CILEXETIL
     Indication: Hypertension
     Dosage: 4 MILLIGRAM
     Route: 065
  5. HEPARIN [Concomitant]
     Active Substance: HEPARIN SODIUM
     Indication: Product used for unknown indication
     Dosage: UNK
     Route: 065
  6. XARELTO [Concomitant]
     Active Substance: RIVAROXABAN
     Indication: Product used for unknown indication
     Dosage: UNK
     Route: 065
  7. ALERTEC [MODAFINIL] [Concomitant]
     Indication: Product used for unknown indication
     Dosage: 4 TABLETS OF 100MG PER DAY
     Route: 065
  8. CELECOXIB [Concomitant]
     Active Substance: CELECOXIB
     Indication: Product used for unknown indication
     Dosage: 20 MILLIGRAM
     Route: 065
  9. COVID-19 VACCINE [Concomitant]
     Indication: COVID-19 immunisation
     Dosage: UNK
     Route: 065
     Dates: start: 202104

REACTIONS (6)
  - Acquired asplenia [Unknown]
  - Syncope [Unknown]
  - Suspected COVID-19 [Unknown]
  - Fatigue [Unknown]
  - Dysphonia [Unknown]
  - Intentional product use issue [Unknown]
